FAERS Safety Report 18442254 (Version 3)
Quarter: 2021Q1

REPORT INFORMATION
  Report Type: Spontaneous
  Country: US (occurrence: US)
  Receive Date: 20201029
  Receipt Date: 20210122
  Transmission Date: 20210419
  Serious: Yes (Congenital Anomaly, Other)
  Sender: FDA-Public Use
  Company Number: US-ALLERGAN-2041397US

PATIENT

DRUGS (4)
  1. FLECAINIDE [Suspect]
     Active Substance: FLECAINIDE
     Indication: EXPOSURE DURING PREGNANCY
     Dosage: 100 MG, BID
     Route: 064
  2. URSODEOXYCHOLIC ACID ? BP [Suspect]
     Active Substance: URSODIOL
     Indication: EXPOSURE DURING PREGNANCY
     Dosage: 300 MG, BID
     Route: 064
  3. BETAMETHASONE. [Suspect]
     Active Substance: BETAMETHASONE
     Indication: EXPOSURE DURING PREGNANCY
     Route: 064
  4. DIGOXIN. [Suspect]
     Active Substance: DIGOXIN
     Indication: EXPOSURE DURING PREGNANCY
     Dosage: 0.25 MG, TID
     Route: 064

REACTIONS (2)
  - Aortic valve incompetence [Unknown]
  - Atrial septal defect [Unknown]
